FAERS Safety Report 22237265 (Version 2)
Quarter: 2023Q2

REPORT INFORMATION
  Report Type: Other
  Country: US (occurrence: None)
  Receive Date: 20230421
  Receipt Date: 20230606
  Transmission Date: 20230721
  Serious: Yes (Hospitalization)
  Sender: FDA-Public Use
  Company Number: US-ROCHE-3330391

PATIENT
  Age: 71 Year
  Sex: Male
  Weight: 96.702 kg

DRUGS (4)
  1. OCREVUS [Suspect]
     Active Substance: OCRELIZUMAB
     Indication: Relapsing-remitting multiple sclerosis
     Dosage: INFUSE 300MG IV DAY 1 AND DAY 15, INFUSE 600MG IV Q 6 MONTHS
     Route: 042
     Dates: start: 20200731
  2. GABAPENTIN [Concomitant]
     Active Substance: GABAPENTIN
  3. DULOXETINE [Concomitant]
     Active Substance: DULOXETINE
  4. OXYGEN [Concomitant]
     Active Substance: OXYGEN

REACTIONS (8)
  - COVID-19 [Recovered/Resolved]
  - Chronic respiratory failure [Not Recovered/Not Resolved]
  - Pneumocystis jirovecii pneumonia [Recovered/Resolved]
  - Memory impairment [Not Recovered/Not Resolved]
  - Alopecia [Not Recovered/Not Resolved]
  - Blood glucose increased [Recovered/Resolved]
  - Illness [Unknown]
  - Near death experience [Unknown]

NARRATIVE: CASE EVENT DATE: 20220101
